FAERS Safety Report 17530852 (Version 2)
Quarter: 2020Q1

REPORT INFORMATION
  Report Type: Report from Study
  Country: PT (occurrence: PT)
  Receive Date: 20200312
  Receipt Date: 20200323
  Transmission Date: 20200409
  Serious: Yes (Other)
  Sender: FDA-Public Use
  Company Number: PT-ROCHE-2556472

PATIENT
  Age: 39 Year
  Sex: Female
  Weight: 65 kg

DRUGS (5)
  1. CARBOPLATIN. [Suspect]
     Active Substance: CARBOPLATIN
     Indication: HER-2 POSITIVE BREAST CANCER
     Dosage: CYCLE:6?LAST DOSE PRIOR TO EVENT: 12/FEB/2020
     Route: 042
     Dates: start: 20191022
  2. PERTUZUMAB. [Suspect]
     Active Substance: PERTUZUMAB
     Indication: HER-2 POSITIVE BREAST CANCER
     Dosage: CYCLE:6?LAST DOSE PRIOR TO EVENT: 02/MAR/2020
     Route: 042
     Dates: start: 20190405
  3. DOCETAXEL. [Suspect]
     Active Substance: DOCETAXEL
     Indication: HER-2 POSITIVE BREAST CANCER
     Dosage: CYCLE:6?LAST DOSE PRIOR TO EVENT: 12/FEB/2020
     Route: 042
     Dates: start: 20191022
  4. AMOXICILINA + CLAVULANICO [Concomitant]
     Active Substance: AMOXICILLIN\CLAVULANIC ACID
     Indication: RESPIRATORY TRACT INFECTION
     Route: 048
     Dates: start: 20200220, end: 20200227
  5. TRASTUZUMAB. [Suspect]
     Active Substance: TRASTUZUMAB
     Indication: HER-2 POSITIVE BREAST CANCER
     Dosage: CYCLE:6?LAST DOSE PRIOR TO EVENT: 02/MAR/2020
     Route: 058
     Dates: start: 20190405

REACTIONS (2)
  - Respiratory tract infection [Recovered/Resolved]
  - Respiratory tract infection [Recovering/Resolving]

NARRATIVE: CASE EVENT DATE: 20200217
